FAERS Safety Report 9611886 (Version 2)
Quarter: 2013Q4

REPORT INFORMATION
  Report Type: Spontaneous
  Country: TR (occurrence: TR)
  Receive Date: 20131010
  Receipt Date: 20131010
  Transmission Date: 20140711
  Serious: Yes (Other)
  Sender: FDA-Public Use
  Company Number: TR-AMGEN-TURSP2013021503

PATIENT
  Sex: Female
  Weight: 3.15 kg

DRUGS (8)
  1. ENBREL [Suspect]
     Indication: PRODUCT USED FOR UNKNOWN INDICATION
     Dosage: 25 MG, 2X/WEEK
     Route: 064
     Dates: start: 20100222
  2. ENBREL [Suspect]
     Indication: PRODUCT USED FOR UNKNOWN INDICATION
     Dosage: 25 MG, 2X/WEEK
     Route: 064
     Dates: start: 20100222
  3. ENBREL [Suspect]
     Dosage: 25 MG, CYCLIC EVERY 20-25 DAYS
     Route: 064
  4. ENBREL [Suspect]
     Dosage: 25 MG, CYCLIC EVERY 20-25 DAYS
     Route: 064
  5. ENBREL [Suspect]
     Dosage: 50 MG, ONCE IN 15-20 DAYS
     Route: 064
     Dates: end: 20130609
  6. ENBREL [Suspect]
     Dosage: 50 MG, ONCE IN 15-20 DAYS
     Route: 064
     Dates: end: 20130609
  7. ENBREL [Suspect]
     Dosage: 25 MG, 2 TIMES/WK
     Route: 058
  8. ENBREL [Suspect]
     Dosage: 25 MG, 2 TIMES/WK
     Route: 058

REACTIONS (4)
  - Umbilical cord around neck [Recovered/Resolved]
  - Vomiting [Unknown]
  - Premature baby [Recovered/Resolved]
  - Maternal exposure during pregnancy [Recovered/Resolved]
